FAERS Safety Report 6033348-8 (Version None)
Quarter: 2009Q1

REPORT INFORMATION
  Report Type: 
  Country: None (occurrence: None)
  Receive Date: 20090109
  Receipt Date: 20081224
  Transmission Date: 20090719
  Serious: Yes (Death, Hospitalization)
  Sender: FDA-Public Use
  Company Number: JP-PFIZER INC-2008159205

PATIENT

DRUGS (1)
  1. CELECOX [Suspect]
     Dosage: 200 MG, 1X/DAY
     Route: 048
     Dates: start: 20080411, end: 20080724

REACTIONS (1)
  - INTERSTITIAL LUNG DISEASE [None]
